FAERS Safety Report 12285679 (Version 1)
Quarter: 2016Q2

REPORT INFORMATION
  Report Type: Spontaneous
  Country: JP (occurrence: JP)
  Receive Date: 20160420
  Receipt Date: 20160420
  Transmission Date: 20160815
  Serious: Yes (Other)
  Sender: FDA-Public Use
  Company Number: JP-MYLANLABS-2016M1016329

PATIENT

DRUGS (2)
  1. CISPLATIN. [Concomitant]
     Active Substance: CISPLATIN
     Indication: SQUAMOUS CELL CARCINOMA
     Dosage: 80MG ON DAY 2
     Route: 065
  2. GEMCITABINE [Suspect]
     Active Substance: GEMCITABINE\GEMCITABINE HYDROCHLORIDE
     Indication: SQUAMOUS CELL CARCINOMA
     Dosage: 1200MG ON DAY 1
     Route: 065

REACTIONS (2)
  - Recall phenomenon [Recovered/Resolved]
  - Rectal ulcer haemorrhage [Recovered/Resolved]
